FAERS Safety Report 23971923 (Version 1)
Quarter: 2024Q2

REPORT INFORMATION
  Report Type: Spontaneous
  Country: GB (occurrence: GB)
  Receive Date: 20240613
  Receipt Date: 20240613
  Transmission Date: 20240717
  Serious: Yes (Hospitalization)
  Sender: FDA-Public Use
  Company Number: GB-MHRA-MED-202405281604239280-LTGFY

PATIENT

DRUGS (4)
  1. AMBRISENTAN [Suspect]
     Active Substance: AMBRISENTAN
     Indication: Adverse drug reaction
     Dosage: 10 MILLIGRAM, QD (TAKE ONE TABLET DAILY AS DIRECTED)
     Route: 065
     Dates: start: 2024
  2. AMBRISENTAN [Suspect]
     Active Substance: AMBRISENTAN
     Indication: Pulmonary arterial hypertension
  3. SILDENAFIL [Suspect]
     Active Substance: SILDENAFIL
     Indication: Adverse drug reaction
     Dosage: 25 MILLIGRAM, TID (ONE TABLET TO BE TAKEN 3 TIMES DAILY)
     Route: 065
     Dates: start: 2024
  4. SILDENAFIL [Suspect]
     Active Substance: SILDENAFIL
     Indication: Pulmonary arterial hypertension

REACTIONS (1)
  - Swelling [Unknown]

NARRATIVE: CASE EVENT DATE: 20240527
